FAERS Safety Report 8118822-2 (Version None)
Quarter: 2012Q1

REPORT INFORMATION
  Report Type: 
  Country: None (occurrence: None)
  Receive Date: 20120207
  Receipt Date: 20120204
  Transmission Date: 20120608
  Serious: No
  Sender: FDA-Public Use
  Company Number: US-TEVA-321150USA

PATIENT
  Sex: Female
  Weight: 71.732 kg

DRUGS (2)
  1. DOXYCYCLINE [Concomitant]
     Indication: ACNE
     Dosage: 200 UNKNOWN;
  2. PLAN B ONE-STEP [Suspect]
     Indication: POST COITAL CONTRACEPTION
     Dosage: 1.5 MILLIGRAM;
     Route: 048
     Dates: start: 20120122, end: 20120122

REACTIONS (6)
  - PELVIC PAIN [None]
  - NAUSEA [None]
  - NIPPLE DISORDER [None]
  - NIPPLE PAIN [None]
  - BREAST PAIN [None]
  - THROMBOSIS [None]
